FAERS Safety Report 4513519-X (Version None)
Quarter: 2004Q4

REPORT INFORMATION
  Report Type: 
  Country: None (occurrence: None)
  Receive Date: 20041124
  Receipt Date: 20041112
  Transmission Date: 20050328
  Serious: Yes (Hospitalization)
  Sender: FDA-Public Use
  Company Number: BRO-007099

PATIENT
  Age: 40 Year
  Sex: Male

DRUGS (4)
  1. IOPAMIDOL [Suspect]
     Indication: NUCLEAR MAGNETIC RESONANCE IMAGING ABDOMINAL
     Dosage: 100 ML
     Route: 042
  2. IOPAMIDOL [Suspect]
     Indication: TESTICULAR NEOPLASM
     Dosage: 100 ML
     Route: 042
  3. PREDNISOLONE [Concomitant]
  4. ATARAX [Concomitant]

REACTIONS (7)
  - ACUTE GENERALISED EXANTHEMATOUS PUSTULOSIS [None]
  - GENERAL PHYSICAL HEALTH DETERIORATION [None]
  - HYPERTHERMIA [None]
  - LEUKOCYTOSIS [None]
  - LOCALISED SKIN REACTION [None]
  - OEDEMA [None]
  - VASCULITIS [None]
